FAERS Safety Report 7858677 (Version 2)
Quarter: 2017Q1

REPORT INFORMATION
  Report Type: Spontaneous
  Country: US (occurrence: US)
  Receive Date: 20110316
  Receipt Date: 20170223
  Transmission Date: 20170429
  Serious: Yes (Death)
  Sender: FDA-Public Use
  Company Number: US-AMGEN-USASP2011014111

PATIENT
  Sex: Male

DRUGS (1)
  1. NPLATE [Suspect]
     Active Substance: ROMIPLOSTIM
     Indication: CHRONIC LYMPHOCYTIC LEUKAEMIA
     Dosage: 0.97 MUG/KG, UNK
     Route: 065
     Dates: start: 20100526, end: 20100603

REACTIONS (2)
  - Cardiac disorder [Fatal]
  - Off label use [Unknown]
